FAERS Safety Report 9311228 (Version 2)
Quarter: 2013Q3

REPORT INFORMATION
  Report Type: Report from Study
  Country: US (occurrence: US)
  Receive Date: 20130528
  Receipt Date: 20130703
  Transmission Date: 20140515
  Serious: Yes (Hospitalization)
  Sender: FDA-Public Use
  Company Number: US-PFIZER INC-2013159740

PATIENT
  Age: 30 Year
  Sex: Female
  Weight: 74 kg

DRUGS (7)
  1. VANQUIX [Suspect]
     Indication: CONVULSION
     Dosage: PRN
     Route: 030
     Dates: start: 20121119
  2. LYRICA [Suspect]
     Indication: EPILEPSY
     Dosage: 300 MG, 2X/DAY
     Route: 048
     Dates: start: 20111214, end: 2013
  3. ATIVAN [Suspect]
     Indication: EPILEPSY
     Dosage: 2 MG, 1X/DAY (QHS)
     Route: 048
     Dates: start: 20110920, end: 2013
  4. KEPPRA [Suspect]
     Indication: EPILEPSY
     Dosage: 1500 MG, 2X/DAY
     Route: 048
     Dates: start: 20070410, end: 2013
  5. LAMICTAL [Suspect]
     Indication: EPILEPSY
     Dosage: 200 MG, 3X/DAY
     Route: 048
     Dates: start: 20081130, end: 2013
  6. POTIGA [Suspect]
     Indication: EPILEPSY
     Dosage: 400 MG, 3X/DAY
     Route: 048
     Dates: start: 20130319, end: 20130329
  7. CLARITIN [Concomitant]
     Indication: SEASONAL ALLERGY
     Dosage: 10 MG, 1X/DAY
     Route: 048
     Dates: start: 20070410

REACTIONS (2)
  - Toxicity to various agents [Recovered/Resolved]
  - Accidental overdose [Recovered/Resolved]
